FAERS Safety Report 7224880-X (Version None)
Quarter: 2011Q1

REPORT INFORMATION
  Report Type: 
  Country: None (occurrence: None)
  Receive Date: 20110113
  Receipt Date: 20110105
  Transmission Date: 20110831
  Serious: Yes (Hospitalization)
  Sender: FDA-Public Use
  Company Number: US-ROCHE-752274

PATIENT
  Sex: Female

DRUGS (1)
  1. XELODA [Suspect]
     Route: 048

REACTIONS (7)
  - PROCTALGIA [None]
  - DEHYDRATION [None]
  - STOMATITIS [None]
  - VISION BLURRED [None]
  - PYREXIA [None]
  - DIARRHOEA [None]
  - FATIGUE [None]
